FAERS Safety Report 5691867-8 (Version None)
Quarter: 2008Q1

REPORT INFORMATION
  Report Type: 
  Country: None (occurrence: None)
  Receive Date: 20080331
  Receipt Date: 20080316
  Transmission Date: 20080703
  Serious: Yes (Hospitalization)
  Sender: FDA-Public Use
  Company Number: AU-1163780

PATIENT
  Age: 79 Year
  Sex: Female

DRUGS (2)
  1. TOBREX [Suspect]
     Indication: POSTOPERATIVE CARE
     Dosage: 1 GTT Q4H OPHTHALMIC
     Route: 047
     Dates: start: 20070614, end: 20070616
  2. ADVANTAN(METHYLPREDNISOLONE ACEPONATE) [Concomitant]

REACTIONS (9)
  - BLOOD PRESSURE SYSTOLIC INCREASED [None]
  - BRONCHOSPASM [None]
  - DYSPNOEA [None]
  - EOSINOPHILIA [None]
  - PCO2 DECREASED [None]
  - PO2 INCREASED [None]
  - RESPIRATORY DISTRESS [None]
  - RESPIRATORY RATE INCREASED [None]
  - WHEEZING [None]
